FAERS Safety Report 9789852 (Version 1)
Quarter: 2013Q4

REPORT INFORMATION
  Report Type: Spontaneous
  Country: CA (occurrence: CA)
  Receive Date: 20131231
  Receipt Date: 20131231
  Transmission Date: 20140711
  Serious: Yes (Hospitalization)
  Sender: FDA-Public Use
  Company Number: CA-CELGENEUS-028-20785-13124055

PATIENT
  Age: 37 Year
  Sex: Female

DRUGS (1)
  1. THALOMID [Suspect]
     Indication: SYSTEMIC LUPUS ERYTHEMATOSUS
     Dosage: 50 MILLIGRAM
     Route: 048
     Dates: start: 20120501

REACTIONS (1)
  - Diabetic ketoacidosis [Not Recovered/Not Resolved]
